FAERS Safety Report 20844855 (Version 2)
Quarter: 2022Q3

REPORT INFORMATION
  Report Type: Report from Study
  Country: AU (occurrence: AU)
  Receive Date: 20220518
  Receipt Date: 20220715
  Transmission Date: 20221027
  Serious: Yes (Hospitalization)
  Sender: FDA-Public Use
  Company Number: AU-NOVARTISPH-NVSC2022AU019130

PATIENT
  Sex: Female

DRUGS (1)
  1. KESIMPTA [Suspect]
     Active Substance: OFATUMUMAB
     Indication: Relapsing-remitting multiple sclerosis
     Dosage: 20 MG, QMO
     Route: 058
     Dates: start: 20220127

REACTIONS (9)
  - Meningitis [Unknown]
  - Influenza like illness [Unknown]
  - Chills [Unknown]
  - Headache [Unknown]
  - Vomiting [Unknown]
  - Back pain [Not Recovered/Not Resolved]
  - Vertigo [Unknown]
  - Electric shock sensation [Unknown]
  - Nausea [Unknown]
